FAERS Safety Report 20747282 (Version 2)
Quarter: 2022Q2

REPORT INFORMATION
  Report Type: Spontaneous
  Country: GB (occurrence: GB)
  Receive Date: 20220425
  Receipt Date: 20220513
  Transmission Date: 20220721
  Serious: Yes (Other)
  Sender: FDA-Public Use
  Company Number: GB-GILEAD-2022-0579155

PATIENT
  Sex: Female

DRUGS (1)
  1. TRODELVY [Suspect]
     Active Substance: SACITUZUMAB GOVITECAN-HZIY
     Indication: Triple negative breast cancer
     Dosage: 3 CYCLES OF TREATMENT AT TIME OF EVENT
     Route: 065

REACTIONS (2)
  - Triple negative breast cancer [Not Recovered/Not Resolved]
  - Dyspnoea [Unknown]
